FAERS Safety Report 20042573 (Version 1)
Quarter: 2021Q4

REPORT INFORMATION
  Report Type: Report from Study
  Country: FR (occurrence: None)
  Receive Date: 20211108
  Receipt Date: 20211108
  Transmission Date: 20220304
  Serious: Yes (Hospitalization)
  Sender: FDA-Public Use
  Company Number: FR-ROCHE-2946702

PATIENT
  Age: 56 Year
  Sex: Female
  Weight: 75.6 kg

DRUGS (3)
  1. BEVACIZUMAB [Suspect]
     Active Substance: BEVACIZUMAB
     Indication: Ovarian cancer
     Dosage: DATE OF LAST ADMINISTRATION: 07/SEP/2021
     Route: 042
     Dates: start: 20210111
  2. CARBOPLATIN [Suspect]
     Active Substance: CARBOPLATIN
     Indication: Ovarian cancer
     Dosage: 5 AUC, DATE OF LAST ADMINISTRATION: 15/JUN/2021
     Route: 042
     Dates: start: 20210111
  3. PACLITAXEL [Suspect]
     Active Substance: PACLITAXEL
     Indication: Ovarian cancer
     Dosage: DATE OF LAST ADMINISTRATION: 15/JUN/2021
     Route: 042

REACTIONS (2)
  - Stoma site discharge [Not Recovered/Not Resolved]
  - Female genital tract fistula [Not Recovered/Not Resolved]

NARRATIVE: CASE EVENT DATE: 20211025
